FAERS Safety Report 8439603-6 (Version None)
Quarter: 2012Q2

REPORT INFORMATION
  Report Type: 
  Country: None (occurrence: None)
  Receive Date: 20120615
  Receipt Date: 20120607
  Transmission Date: 20120825
  Serious: Yes (Hospitalization)
  Sender: FDA-Public Use
  Company Number: US-ABBOTT-12P-163-0943793-00

PATIENT
  Sex: Male
  Weight: 101.7 kg

DRUGS (11)
  1. HUMIRA [Suspect]
     Indication: PSORIATIC ARTHROPATHY
     Dates: start: 20120201
  2. PROPECIA [Concomitant]
     Indication: ALOPECIA
  3. CIALIS [Concomitant]
     Indication: ERECTILE DYSFUNCTION
  4. TESTOSTERONE [Concomitant]
     Indication: BLOOD TESTOSTERONE DECREASED
  5. VICTOZA [Concomitant]
     Indication: TYPE 2 DIABETES MELLITUS
  6. HUMIRA [Suspect]
     Indication: PSORIASIS
  7. LISINOPRIL [Concomitant]
     Indication: HYPERTENSION
  8. CELEBREX [Concomitant]
     Indication: PSORIATIC ARTHROPATHY
  9. UNKNOWN THYROID MEDICATION [Concomitant]
     Indication: HYPOTHYROIDISM
  10. CRESTOR [Concomitant]
     Indication: BLOOD CHOLESTEROL INCREASED
  11. GLIPIZIDE [Concomitant]
     Indication: TYPE 2 DIABETES MELLITUS

REACTIONS (10)
  - LIPASE INCREASED [None]
  - AMYLASE INCREASED [None]
  - ABDOMINAL DISTENSION [None]
  - PANCREATITIS [None]
  - ARTHRALGIA [None]
  - PANCREATIC ENLARGEMENT [None]
  - BILE DUCT OBSTRUCTION [None]
  - OEDEMA PERIPHERAL [None]
  - PSORIATIC ARTHROPATHY [None]
  - ABDOMINAL PAIN [None]
